FAERS Safety Report 7401017-5 (Version None)
Quarter: 2011Q1

REPORT INFORMATION
  Report Type: 
  Country: None (occurrence: None)
  Receive Date: 20110329
  Receipt Date: 20110314
  Transmission Date: 20110831
  Serious: Yes (Hospitalization)
  Sender: FDA-Public Use
  Company Number: 2011-00333

PATIENT
  Age: 42 Year
  Sex: Female
  Weight: 72.5755 kg

DRUGS (4)
  1. CEFADROXIL [Suspect]
     Indication: BRONCHITIS
     Dosage: 1000 MG (500 MG, 2 IN 1 D), PER ORAL
     Route: 048
     Dates: start: 20110210, end: 20110216
  2. ESOMEPRAZOLE MAGNESIUM (NEXIUM) (UNKNOWN) [Concomitant]
  3. FERROUS SULFATE (UNKNOWN) [Concomitant]
  4. PREDNISONE [Concomitant]

REACTIONS (11)
  - ANAEMIA [None]
  - CONDITION AGGRAVATED [None]
  - ABDOMINAL PAIN UPPER [None]
  - DEHYDRATION [None]
  - PYREXIA [None]
  - APHAGIA [None]
  - WEIGHT DECREASED [None]
  - COLITIS ULCERATIVE [None]
  - DRUG INEFFECTIVE [None]
  - BLOOD IRON DECREASED [None]
  - RECTAL HAEMORRHAGE [None]
